FAERS Safety Report 4738787-0 (Version None)
Quarter: 2005Q3

REPORT INFORMATION
  Report Type: 
  Country: None (occurrence: None)
  Receive Date: 20050804
  Receipt Date: 20050728
  Transmission Date: 20060218
  Serious: Yes (Hospitalization)
  Sender: FDA-Public Use
  Company Number: 501325410/PHRM2005FRO2144

PATIENT
  Age: 47 Year
  Sex: Female

DRUGS (1)
  1. AK-FLUOR 10%, AKORN [Suspect]
     Dosage: 3  ML, ONCE, INTRAVENOUS
     Route: 042
     Dates: start: 20050624, end: 20050624

REACTIONS (7)
  - BLOOD PRESSURE DECREASED [None]
  - COLD SWEAT [None]
  - CONVULSION [None]
  - LOSS OF CONSCIOUSNESS [None]
  - MALAISE [None]
  - PALLOR [None]
  - URINARY INCONTINENCE [None]
